FAERS Safety Report 5466917-4 (Version None)
Quarter: 2007Q3

REPORT INFORMATION
  Report Type: 
  Country: None (occurrence: None)
  Receive Date: 20070920
  Receipt Date: 20070905
  Transmission Date: 20080115
  Serious: Yes (Other)
  Sender: FDA-Public Use
  Company Number: DSA_30552_2007

PATIENT
  Sex: Female

DRUGS (1)
  1. TAVOR /00273201/ (TAVOR - LORAZEPAM) (0.5 MG, 1 MG) [Suspect]
     Indication: DRUG USE FOR UNKNOWN INDICATION
     Dosage: (0.5 MG BID ORAL), (1 MG BID ORAL)
     Route: 048

REACTIONS (2)
  - DRUG DEPENDENCE [None]
  - FEELING OF BODY TEMPERATURE CHANGE [None]
